FAERS Safety Report 21157356 (Version 1)
Quarter: 2022Q3

REPORT INFORMATION
  Report Type: Spontaneous
  Country: US (occurrence: US)
  Receive Date: 20220801
  Receipt Date: 20220801
  Transmission Date: 20221027
  Serious: No
  Sender: FDA-Public Use
  Company Number: US-MYLANLABS-2022M1079817

PATIENT
  Age: 75 Year
  Sex: Male

DRUGS (3)
  1. WIXELA INHUB [Suspect]
     Active Substance: FLUTICASONE PROPIONATE\SALMETEROL XINAFOATE
     Indication: Idiopathic pulmonary fibrosis
     Dosage: UNK UNK, QD (3 PUFFS A DAY)
     Route: 065
  2. PANTOPRAZOLE [Concomitant]
     Active Substance: PANTOPRAZOLE
     Indication: Oesophageal disorder
     Dosage: UNK UNK, QD (ONCE A DAY )
     Route: 065
  3. ABHR [Concomitant]
     Indication: Nausea
     Dosage: UNK UNK, TID (THREE TIMES A DAY)
     Route: 065

REACTIONS (3)
  - Accidental exposure to product [Unknown]
  - Off label use [Unknown]
  - Hospice care [Unknown]

NARRATIVE: CASE EVENT DATE: 20220716
